FAERS Safety Report 16910653 (Version 1)
Quarter: 2019Q4

REPORT INFORMATION
  Report Type: Spontaneous
  Country: FR (occurrence: FR)
  Receive Date: 20191012
  Receipt Date: 20191012
  Transmission Date: 20200122
  Serious: Yes (Hospitalization)
  Sender: FDA-Public Use
  Company Number: FR-ROCHE-2432554

PATIENT
  Age: 59 Year
  Sex: Male
  Weight: 71.5 kg

DRUGS (8)
  1. SOLIRIS [Suspect]
     Active Substance: ECULIZUMAB
     Indication: GLOMERULONEPHRITIS PROLIFERATIVE
     Route: 042
     Dates: start: 20190715
  2. PANTOPRAZOLE [Concomitant]
     Active Substance: PANTOPRAZOLE
     Route: 065
  3. ORACILLINE [PHENOXYMETHYLPENICILLIN] [Concomitant]
     Active Substance: PENICILLIN V
     Route: 065
  4. CELLCEPT [Suspect]
     Active Substance: MYCOPHENOLATE MOFETIL\MYCOPHENOLATE MOFETIL HYDROCHLORIDE
     Indication: GLOMERULONEPHRITIS PROLIFERATIVE
     Route: 042
     Dates: start: 20190703
  5. CORTANCYL [Concomitant]
     Active Substance: PREDNISONE
     Route: 065
  6. AZITHROMYCINE [Suspect]
     Active Substance: AZITHROMYCIN
     Indication: LARGE INTESTINE INFECTION
     Dosage: RECENT DOSE ON 01/SEP/2019
     Route: 048
     Dates: start: 20190828
  7. RAMIPRIL. [Concomitant]
     Active Substance: RAMIPRIL
     Route: 065
  8. LASILIX [FUROSEMIDE] [Concomitant]
     Active Substance: FUROSEMIDE
     Route: 065

REACTIONS (1)
  - Aplasia [Recovered/Resolved]

NARRATIVE: CASE EVENT DATE: 20190910
